FAERS Safety Report 8973403 (Version 1)
Quarter: 2012Q4

REPORT INFORMATION
  Report Type: 
  Country: FR (occurrence: FR)
  Receive Date: 20121218
  Receipt Date: 20121218
  Transmission Date: 20130627
  Serious: Yes (Other)
  Sender: FDA-Public Use
  Company Number: FR-VERTEX PHARMACEUTICALS INC.-AE-2011-000183

PATIENT
  Age: 54 Year
  Sex: Female
  Weight: 80 kg

DRUGS (11)
  1. VX-950 (TELAPREVIR) [Suspect]
     Indication: HEPATITIS C
     Dosage: 750 mg
     Route: 048
     Dates: start: 20110419, end: 20110713
  2. COPEGUS [Suspect]
     Indication: HEPATITIS C
     Dosage: 400 mg, bid
     Dates: start: 20111109, end: 20120130
  3. COPEGUS [Suspect]
     Dosage: 600 mg, bid
     Dates: start: 20110419
  4. PEGASYS [Suspect]
     Indication: HEPATITIS C
     Dosage: 180 ?g, qw
     Dates: start: 20110419, end: 20111109
  5. PEGASYS [Suspect]
     Dosage: 135 ?g, qw
     Dates: start: 20111109, end: 20120130
  6. SEROPRAM B [Concomitant]
     Indication: DEPRESSION
     Dosage: 30 mg, qd
     Route: 065
  7. LYSANXIA [Concomitant]
     Indication: DEPRESSION
     Dosage: 10 mg, tid
     Route: 065
  8. TERCIAN [Concomitant]
     Indication: DEPRESSION
     Dosage: 25 mg, qd
     Route: 065
  9. ATARAX [Concomitant]
     Indication: PERSONALITY DISORDER
     Dosage: 50 mg, qd
     Route: 065
  10. THERALENE [Concomitant]
     Indication: PERSONALITY DISORDER
     Dosage: 5 mg, qd
     Route: 065
  11. NOCTRAN [Concomitant]
     Indication: SLEEP DISORDER
     Dosage: 10 mg, qd
     Route: 065

REACTIONS (4)
  - Thrombocytopenia [Recovered/Resolved]
  - Rash [Recovered/Resolved]
  - Haemorrhoids [Unknown]
  - Neutropenia [Recovered/Resolved]
